FAERS Safety Report 10030991 (Version 4)
Quarter: 2014Q2

REPORT INFORMATION
  Report Type: Report from Study
  Country: DE (occurrence: DE)
  Receive Date: 20140324
  Receipt Date: 20140421
  Transmission Date: 20141212
  Serious: Yes (Hospitalization)
  Sender: FDA-Public Use
  Company Number: DE-AMGEN-DEUCT2014019785

PATIENT
  Age: 47 Year
  Sex: Female
  Weight: 71 kg

DRUGS (6)
  1. ETANERCEPT [Suspect]
     Indication: PRODUCT USED FOR UNKNOWN INDICATION
     Dosage: 50 MG, QWK
     Route: 065
     Dates: start: 20130109, end: 20131204
  2. ETANERCEPT [Suspect]
     Dosage: 50 MG, WEEKLY
     Route: 065
     Dates: start: 20131220
  3. CELEBREX [Concomitant]
     Dosage: 200 MG, 1X/DAY
  4. L-THYROXIN [Concomitant]
     Indication: HYPOTHYROIDISM
     Dosage: 75 UG, 1X/DAY
     Dates: start: 201309, end: 20140120
  5. L-THYROXIN [Concomitant]
     Dosage: 50 UG, 1X/DAY
     Dates: start: 20140121
  6. VITAMIN D                          /00107901/ [Concomitant]
     Dosage: UNK, QD

REACTIONS (1)
  - VIIth nerve paralysis [Recovering/Resolving]
